FAERS Safety Report 16257867 (Version 1)
Quarter: 2019Q2

REPORT INFORMATION
  Report Type: Spontaneous
  Country: US (occurrence: US)
  Receive Date: 20190430
  Receipt Date: 20190430
  Transmission Date: 20190711
  Serious: No
  Sender: FDA-Public Use
  Company Number: US-GREER LABORATORIES, INC.-2066455

PATIENT
  Age: 68 Year
  Sex: Male

DRUGS (9)
  1. POLLENS - TREES, CEDAR, RED JUNIPERUS VIRGINIANA [Suspect]
     Active Substance: JUNIPERUS VIRGINIANA POLLEN
     Route: 058
     Dates: start: 20180110
  2. POLLENS - WEEDS AND GARDEN PLANTS, PIGWEED, ROUGH REDROOT AMARANTHUS RETROFLEXUS [Suspect]
     Active Substance: AMARANTHUS RETROFLEXUS POLLEN
     Route: 058
     Dates: start: 20180110
  3. POLLENS - WEEDS AND GARDEN PLANTS, LAMBS QUARTERS CHENOPODIUM ALBUM [Suspect]
     Active Substance: CHENOPODIUM ALBUM POLLEN
     Route: 058
     Dates: start: 20180110
  4. STANDARDIZED BERMUDA GRASS [Suspect]
     Active Substance: CYNODON DACTYLON POLLEN
     Route: 058
     Dates: start: 20180110
  5. VIRGINIA LIVE OAK [Suspect]
     Active Substance: QUERCUS VIRGINIANA POLLEN
     Route: 058
     Dates: start: 20180110
  6. POLLENS - GRASSES, BAHIA GRASS PASPALUM NOTATUM [Suspect]
     Active Substance: PASPALUM NOTATUM POLLEN
     Route: 058
     Dates: start: 20180110
  7. POLLENS - WEEDS AND GARDEN PLANTS, SORREL, SHEEP RUMEX ACETOSELLA [Suspect]
     Active Substance: RUMEX ACETOSELLA POLLEN
     Route: 058
     Dates: start: 20180110
  8. ALLERGENIC EXTRACT- BLUEGRASS, KENTUCKY JUNE POA PRATENSIS [Suspect]
     Active Substance: POA PRATENSIS POLLEN
     Indication: MULTIPLE ALLERGIES
     Route: 058
     Dates: start: 20180110
  9. POLLENS - GRASSES, JOHNSON GRASS SORGHUM HALEPENSE [Suspect]
     Active Substance: SORGHUM HALEPENSE POLLEN
     Route: 058
     Dates: start: 20180110

REACTIONS (1)
  - Injection site reaction [Recovered/Resolved]

NARRATIVE: CASE EVENT DATE: 20190314
